FAERS Safety Report 8079558-X (Version None)
Quarter: 2012Q1

REPORT INFORMATION
  Report Type: 
  Country: None (occurrence: None)
  Receive Date: 20120128
  Receipt Date: 20110830
  Transmission Date: 20120608
  Serious: No
  Sender: FDA-Public Use
  Company Number: US-ABBOTT-11P-163-0850338-00

PATIENT
  Age: 65 Year
  Sex: Male
  Weight: 78.996 kg

DRUGS (4)
  1. ATENOLOL [Concomitant]
     Indication: PRODUCT USED FOR UNKNOWN INDICATION
     Dosage: 100MG DAILY
  2. HUMIRA [Suspect]
     Indication: PSORIASIS
     Dates: start: 20110408
  3. LISINOPRIL AND HYDROCHLOROTHIAZIDE [Concomitant]
     Indication: PRODUCT USED FOR UNKNOWN INDICATION
     Dosage: 20MG/12.5MG DAILY
  4. ZETIA [Concomitant]
     Dosage: 10MG DAILY

REACTIONS (1)
  - WEIGHT INCREASED [None]
